FAERS Safety Report 25947562 (Version 1)
Quarter: 2025Q4

REPORT INFORMATION
  Report Type: Spontaneous
  Country: US (occurrence: US)
  Receive Date: 20251022
  Receipt Date: 20251022
  Transmission Date: 20260118
  Serious: Yes (Hospitalization)
  Sender: MYLAN
  Company Number: US-MYLANLABS-2025M1089278

PATIENT
  Age: 55 Year
  Sex: Male

DRUGS (4)
  1. ATORVASTATIN [Suspect]
     Active Substance: ATORVASTATIN
     Indication: Lipid management
     Dosage: UNK
  2. SIMVASTATIN [Interacting]
     Active Substance: SIMVASTATIN
     Indication: Lipid management
     Dosage: 20 MILLIGRAM, QD
  3. SIMVASTATIN [Interacting]
     Active Substance: SIMVASTATIN
     Dosage: 40 MILLIGRAM, QD
  4. LISINOPRIL [Interacting]
     Active Substance: LISINOPRIL
     Indication: Product used for unknown indication
     Dosage: 10 MILLIGRAM

REACTIONS (4)
  - Drug interaction [Recovered/Resolved]
  - Accidental overdose [Recovered/Resolved]
  - Angioedema [Recovered/Resolved]
  - Extra dose administered [Recovered/Resolved]
